FAERS Safety Report 14045587 (Version 1)
Quarter: 2017Q4

REPORT INFORMATION
  Report Type: Spontaneous
  Country: US (occurrence: US)
  Receive Date: 20171005
  Receipt Date: 20171005
  Transmission Date: 20180321
  Serious: No
  Sender: FDA-Public Use
  Company Number: US-INDIVIOR LIMITED-INDV-103491-2017

PATIENT
  Age: 34 Year
  Sex: Male

DRUGS (3)
  1. SUBOXONE [Suspect]
     Active Substance: BUPRENORPHINE HYDROCHLORIDE\NALOXONE HYDROCHLORIDE
     Indication: DRUG USE DISORDER
     Dosage: 10 MG ACHIEVED BY CUTTING
     Route: 060
     Dates: start: 2017, end: 20170720
  2. OXYCODONE [Suspect]
     Active Substance: OXYCODONE
     Dosage: 30 MG, UNK
     Route: 065
  3. OXYCODONE [Suspect]
     Active Substance: OXYCODONE
     Indication: PRODUCT USED FOR UNKNOWN INDICATION
     Dosage: UNK
     Route: 065

REACTIONS (5)
  - Chemical burn [Not Recovered/Not Resolved]
  - Product preparation error [Recovered/Resolved]
  - Tendon injury [Not Recovered/Not Resolved]
  - Malaise [Not Recovered/Not Resolved]
  - Substance abuse [Recovered/Resolved]

NARRATIVE: CASE EVENT DATE: 2017
